FAERS Safety Report 5032306-X (Version None)
Quarter: 2006Q2

REPORT INFORMATION
  Report Type: 
  Country: None (occurrence: None)
  Receive Date: 20060621
  Receipt Date: 20060621
  Transmission Date: 20061013
  Serious: No
  Sender: FDA-Public Use
  Company Number: None

PATIENT
  Age: 63 Year
  Sex: Male
  Weight: 108 kg

DRUGS (8)
  1. MOMETASONE (AZMANEX(R) )      SCHERING-PLOUGH [Suspect]
     Indication: CHRONIC OBSTRUCTIVE PULMONARY DISEASE
     Dosage: 2 PUFFS BID   INHALER
     Route: 055
     Dates: start: 20060620, end: 20060621
  2. THEOPHYLLINE [Concomitant]
  3. OXYBUTYNIN [Concomitant]
  4. METFORMIN [Concomitant]
  5. GLIPIZIDE [Concomitant]
  6. FORMOTEROL [Concomitant]
  7. ASPIRIN [Concomitant]
  8. ALBUTEROL SULFATE AND IPRATROPIUM BROMIDE [Concomitant]

REACTIONS (1)
  - MEDICATION ERROR [None]
